FAERS Safety Report 7763119-3 (Version None)
Quarter: 2011Q3

REPORT INFORMATION
  Report Type: 
  Country: None (occurrence: None)
  Receive Date: 20110920
  Receipt Date: 20110908
  Transmission Date: 20111222
  Serious: Yes (Disabling, Other)
  Sender: FDA-Public Use
  Company Number: PHEH2007US02902

PATIENT
  Sex: Female
  Weight: 73.016 kg

DRUGS (10)
  1. IBUPROFEN [Concomitant]
  2. FASLODEX [Concomitant]
  3. DIGOXIN [Concomitant]
  4. LISINOPRIL [Concomitant]
  5. SPIRONOLACTONE [Concomitant]
  6. TORSEMIDE [Concomitant]
  7. TOPRAL [Concomitant]
  8. ZOMETA [Suspect]
     Dosage: 4 MG, UNK
  9. AREDIA [Suspect]
     Dosage: 90 MG, UNK
  10. ARIMIDEX [Concomitant]

REACTIONS (43)
  - ANXIETY [None]
  - CARDIOMEGALY [None]
  - PLEURAL FIBROSIS [None]
  - CYSTOCELE [None]
  - HEPATIC STEATOSIS [None]
  - MUSCULOSKELETAL PAIN [None]
  - GASTROOESOPHAGEAL REFLUX DISEASE [None]
  - SPINAL DISORDER [None]
  - GENERAL PHYSICAL HEALTH DETERIORATION [None]
  - PAIN [None]
  - DYSPNOEA [None]
  - METAPLASIA [None]
  - VENTRICULAR HYPOKINESIA [None]
  - PYREXIA [None]
  - PLEURAL EFFUSION [None]
  - SPINAL OSTEOARTHRITIS [None]
  - TRICUSPID VALVE INCOMPETENCE [None]
  - PULMONARY HYPERTENSION [None]
  - LYMPHADENOPATHY [None]
  - OSTEONECROSIS OF JAW [None]
  - CARDIAC FAILURE CONGESTIVE [None]
  - OSTEOLYSIS [None]
  - BACK PAIN [None]
  - LUNG INFILTRATION [None]
  - PAIN IN JAW [None]
  - HYPERPLASIA [None]
  - DECREASED INTEREST [None]
  - ROTATOR CUFF SYNDROME [None]
  - CERVICOBRACHIAL SYNDROME [None]
  - ORTHOPNOEA [None]
  - RENAL CYST [None]
  - METASTASES TO BONE [None]
  - ORAL DISORDER [None]
  - ARTHRALGIA [None]
  - METASTASES TO LUNG [None]
  - CHEST PAIN [None]
  - TOOTH DISORDER [None]
  - ASTHMA [None]
  - UTERINE FIBROSIS [None]
  - PULMONARY CONGESTION [None]
  - LYMPHADENOPATHY MEDIASTINAL [None]
  - MITRAL VALVE INCOMPETENCE [None]
  - OVARIAN CYST [None]
